FAERS Safety Report 10218394 (Version 1)
Quarter: 2014Q2

REPORT INFORMATION
  Report Type: Spontaneous
  Country: US (occurrence: US)
  Receive Date: 20140605
  Receipt Date: 20140605
  Transmission Date: 20141212
  Serious: Yes (Hospitalization, Other)
  Sender: FDA-Public Use
  Company Number: US-JNJFOC-20140518629

PATIENT
  Age: 62 Year
  Sex: Female
  Weight: 61.69 kg

DRUGS (12)
  1. SIMPONI [Suspect]
     Indication: RHEUMATOID ARTHRITIS
     Route: 058
     Dates: start: 201206, end: 20140201
  2. VARENICLINE TARTRATE [Suspect]
     Indication: SMOKING CESSATION THERAPY
     Route: 048
     Dates: start: 20131118, end: 20131121
  3. VARENICLINE TARTRATE [Suspect]
     Indication: SMOKING CESSATION THERAPY
     Route: 048
     Dates: start: 20131115, end: 20131117
  4. VARENICLINE TARTRATE [Suspect]
     Indication: SMOKING CESSATION THERAPY
     Route: 048
     Dates: start: 20131122, end: 20140105
  5. METHOTREXATE [Suspect]
     Indication: RHEUMATOID ARTHRITIS
     Dosage: 8 X 2MG
     Route: 048
     Dates: start: 2008, end: 20140201
  6. FOLIC ACID [Concomitant]
     Route: 065
     Dates: start: 2008
  7. SPIRONOLACTONE [Concomitant]
     Route: 065
     Dates: start: 2005
  8. ESTRADIOL [Concomitant]
     Route: 065
     Dates: start: 2004
  9. METOPROLOL [Concomitant]
     Route: 065
     Dates: start: 20050524
  10. LIPITOR [Concomitant]
     Route: 065
     Dates: start: 20050524, end: 20140228
  11. ASPIRIN [Concomitant]
     Route: 065
  12. NAPROXEN [Concomitant]
     Route: 065
     Dates: start: 2008, end: 20140228

REACTIONS (2)
  - Pneumonia [Recovered/Resolved]
  - Device related infection [Not Recovered/Not Resolved]
